FAERS Safety Report 19500091 (Version 1)
Quarter: 2021Q3

REPORT INFORMATION
  Report Type: Report from Study
  Country: None (occurrence: US)
  Receive Date: 20210707
  Receipt Date: 20210707
  Transmission Date: 20211014
  Serious: Yes (Other)
  Sender: FDA-Public Use
  Company Number: US-ABBVIE-21K-163-3978026-00

PATIENT
  Age: 17 Year
  Sex: Male

DRUGS (1)
  1. VENCLEXTA [Suspect]
     Active Substance: VENETOCLAX
     Indication: ACUTE LYMPHOCYTIC LEUKAEMIA
     Route: 048
     Dates: start: 20210701

REACTIONS (3)
  - Off label use [Unknown]
  - Gastrointestinal tube insertion [Unknown]
  - Dysphagia [Unknown]

NARRATIVE: CASE EVENT DATE: 20210701
